FAERS Safety Report 9255409 (Version 2)
Quarter: 2013Q2

REPORT INFORMATION
  Report Type: Spontaneous
  Country: US (occurrence: US)
  Receive Date: 20130425
  Receipt Date: 20130425
  Transmission Date: 20140414
  Serious: No
  Sender: FDA-Public Use
  Company Number: US-BRISTOL-MYERS SQUIBB COMPANY-16936841

PATIENT
  Sex: 0

DRUGS (1)
  1. HYDREA CAPS 500 MG [Suspect]

REACTIONS (2)
  - Accidental exposure to product [Unknown]
  - Skin discolouration [Unknown]
